FAERS Safety Report 25163240 (Version 2)
Quarter: 2025Q2

REPORT INFORMATION
  Report Type: Spontaneous
  Country: SE (occurrence: SE)
  Receive Date: 20250404
  Receipt Date: 20250514
  Transmission Date: 20250716
  Serious: Yes (Death)
  Sender: FRESENIUS KABI
  Company Number: None

PATIENT
  Age: 21 Year
  Sex: Male
  Weight: 48 kg

DRUGS (2)
  1. ROPIVACAINE [Suspect]
     Active Substance: ROPIVACAINE
     Indication: Circumcision
     Dates: start: 20250306, end: 20250306
  2. ROPIVACAINE [Suspect]
     Active Substance: ROPIVACAINE
     Indication: Nerve block

REACTIONS (1)
  - Local anaesthetic systemic toxicity [Fatal]

NARRATIVE: CASE EVENT DATE: 20250306
